FAERS Safety Report 21238267 (Version 1)
Quarter: 2022Q3

REPORT INFORMATION
  Report Type: Spontaneous
  Country: TN (occurrence: TN)
  Receive Date: 20220822
  Receipt Date: 20220822
  Transmission Date: 20221027
  Serious: Yes (Hospitalization)
  Sender: FDA-Public Use
  Company Number: None

PATIENT
  Age: 17 Year
  Sex: Female

DRUGS (8)
  1. METHOTREXATE [Suspect]
     Active Substance: METHOTREXATE
     Indication: B precursor type acute leukaemia
     Dosage: 5G/M2; INDUCTION THERAPY (ADMINISTERED OVER 24H)
     Route: 042
  2. METHOTREXATE [Suspect]
     Active Substance: METHOTREXATE
     Dosage: RESTARTED THERAPY
     Route: 042
  3. VINCRISTINE [Suspect]
     Active Substance: VINCRISTINE
     Indication: B precursor type acute leukaemia
     Dosage: INDUCTION THERAPY
     Route: 065
  4. DEXAMETHASONE [Suspect]
     Active Substance: DEXAMETHASONE
     Indication: B precursor type acute leukaemia
     Dosage: 6 MILLIGRAM/SQ. METER, QD SCHEDULED TO RECEIVE INDUCTION THERAPY ON DAY1-28
     Route: 065
  5. SODIUM BICARBONATE [Concomitant]
     Active Substance: SODIUM BICARBONATE
     Indication: Drug therapy
     Dosage: 1 L/M2
     Route: 042
  6. SODIUM CHLORIDE [Concomitant]
     Active Substance: SODIUM CHLORIDE
     Indication: Drug therapy
     Dosage: 1.5 M2/L
     Route: 042
  7. LEUCOVORIN [Concomitant]
     Active Substance: LEUCOVORIN
     Indication: Drug therapy
     Dosage: 25 MILLIGRAM/SQ. METER
     Route: 065
  8. LEUCOVORIN [Concomitant]
     Active Substance: LEUCOVORIN
     Dosage: 50 MILLIGRAM/SQ. METER
     Route: 065

REACTIONS (3)
  - Haematotoxicity [Recovering/Resolving]
  - Hypersensitivity pneumonitis [Recovered/Resolved]
  - Renal impairment [Recovering/Resolving]
